FAERS Safety Report 7618321-8 (Version None)
Quarter: 2011Q3

REPORT INFORMATION
  Report Type: 
  Country: None (occurrence: None)
  Receive Date: 20110718
  Receipt Date: 20110706
  Transmission Date: 20111222
  Serious: Yes (Hospitalization)
  Sender: FDA-Public Use
  Company Number: US-ROCHE-788692

PATIENT
  Sex: Female

DRUGS (5)
  1. HERCEPTIN [Suspect]
     Route: 041
     Dates: start: 20110413, end: 20110413
  2. DOCETAXEL [Suspect]
     Indication: BREAST CANCER
     Route: 042
     Dates: start: 20110406, end: 20110406
  3. HERCEPTIN [Suspect]
     Indication: BREAST CANCER
     Dosage: EVERY CYCLE
     Route: 041
     Dates: start: 20110406, end: 20110406
  4. HERCEPTIN [Suspect]
     Route: 041
  5. DOCETAXEL [Suspect]
     Route: 042
     Dates: start: 20110413, end: 20110413

REACTIONS (3)
  - BLISTER [None]
  - ONYCHOMADESIS [None]
  - PALMAR-PLANTAR ERYTHRODYSAESTHESIA SYNDROME [None]
